FAERS Safety Report 6600905-7 (Version None)
Quarter: 2010Q1

REPORT INFORMATION
  Report Type: 
  Country: None (occurrence: None)
  Receive Date: 20100224
  Receipt Date: 20100224
  Transmission Date: 20100710
  Serious: Yes (Other)
  Sender: FDA-Public Use
  Company Number: None

PATIENT
  Age: 44 Year
  Sex: Female
  Weight: 55.7924 kg

DRUGS (1)
  1. LATISSE [Suspect]
     Indication: HYPOTRICHOSIS
     Dosage: 1 DROP PER EYE LID DAILY TOPICAL
     Route: 061
     Dates: start: 20091201, end: 20100131

REACTIONS (2)
  - DRY SKIN [None]
  - SKIN EXFOLIATION [None]
